FAERS Safety Report 7196021-9 (Version None)
Quarter: 2010Q4

REPORT INFORMATION
  Report Type: 
  Country: None (occurrence: None)
  Receive Date: 20101223
  Receipt Date: 20101013
  Transmission Date: 20110411
  Serious: No
  Sender: FDA-Public Use
  Company Number: US-AMGEN INC.-KDL445275

PATIENT

DRUGS (8)
  1. ENBREL [Suspect]
     Indication: PRODUCT USED FOR UNKNOWN INDICATION
     Dosage: 50 MG, QWK
     Route: 058
  2. XALATAN [Concomitant]
     Dosage: .005 %, UNK
  3. PREDNISONE [Concomitant]
     Dosage: 1 MG, UNK
  4. FOLIC ACID [Concomitant]
     Dosage: 1 MG, UNK
  5. CYCLOBENZAPRINE [Concomitant]
     Dosage: 5 MG, UNK
  6. CALCIUM [Concomitant]
     Dosage: 500 MG, UNK
  7. METHOTREXATE [Concomitant]
     Dosage: 25 MG/ML, UNK
  8. SULFASALAZINE [Concomitant]
     Dosage: 500 MG, UNK

REACTIONS (1)
  - DIZZINESS [None]
